FAERS Safety Report 9065852 (Version 1)
Quarter: 2013Q1

REPORT INFORMATION
  Report Type: Spontaneous
  Country: CL (occurrence: CL)
  Receive Date: 20130214
  Receipt Date: 20130214
  Transmission Date: 20140127
  Serious: Yes (Other)
  Sender: FDA-Public Use
  Company Number: PHHY2013CL014124

PATIENT
  Age: 52 Year
  Sex: Female

DRUGS (7)
  1. ACLASTA [Suspect]
     Indication: OSTEOPOROSIS PROPHYLAXIS
     Dosage: UNK UKN, UNK
     Route: 042
     Dates: start: 201204
  2. NEO-SINTROM [Concomitant]
     Indication: HYPERCOAGULATION
     Dosage: UNK UKN, UNK
     Dates: start: 2008
  3. NEOREN [Concomitant]
     Indication: GASTROOESOPHAGEAL REFLUX DISEASE
     Dosage: 20 MG, BID
  4. EUTIROX [Concomitant]
     Indication: HYPOTHYROIDISM
     Dosage: 88 UG, QD
  5. PRISTIQ [Concomitant]
     Indication: DEPRESSION
     Dosage: 50 MG, UNK
  6. CALCIMAX                           /01424301/ [Concomitant]
     Indication: OSTEOPOROSIS PROPHYLAXIS
     Dosage: 500 MG, UNK
  7. GLAFORNIL [Concomitant]
     Indication: INSULIN RESISTANCE
     Dosage: 750 MG, BID

REACTIONS (5)
  - Lymphoma [Not Recovered/Not Resolved]
  - Plasmodium vivax infection [Recovering/Resolving]
  - Headache [Recovering/Resolving]
  - Pyrexia [Recovering/Resolving]
  - Hypotension [Recovering/Resolving]
